FAERS Safety Report 8798292 (Version 2)
Quarter: 2012Q4

REPORT INFORMATION
  Report Type: Report from Study
  Country: PR (occurrence: PR)
  Receive Date: 20120920
  Receipt Date: 20121017
  Transmission Date: 20130627
  Serious: Yes (Other)
  Sender: FDA-Public Use
  Company Number: PR-ABBOTT-12P-131-0973989-00

PATIENT
  Age: 47 None
  Sex: Female
  Weight: 59.02 kg

DRUGS (9)
  1. HUMIRA 40 MG/0.8 ML PEN [Suspect]
     Indication: RHEUMATOID ARTHRITIS
     Route: 058
     Dates: start: 2007, end: 20120827
  2. HUMIRA 40 MG/0.8 ML PEN [Suspect]
     Route: 058
     Dates: start: 20120911
  3. CYMBALTA [Concomitant]
     Indication: RHEUMATOID ARTHRITIS
     Dosage: 1 tablet in the morning
     Route: 048
     Dates: start: 2011
  4. CYMBALTA [Concomitant]
     Dosage: 1 tablet in the evening
     Route: 048
     Dates: start: 2011
  5. RELAFEN [Concomitant]
     Indication: RHEUMATOID ARTHRITIS
     Dosage: 1 tablet twice daily as needed
     Dates: start: 1998
  6. EVISTA [Concomitant]
     Indication: OSTEOPENIA
     Route: 048
  7. CALTRATE [Concomitant]
     Indication: OSTEOPENIA
     Route: 048
  8. UNKNOWN PILL [Concomitant]
     Indication: PRODUCT USED FOR UNKNOWN INDICATION
     Route: 048
  9. RELAFEN [Concomitant]
     Indication: RHEUMATOID ARTHRITIS
     Dosage: 1 tabled twice daily as needed
     Dates: start: 1998

REACTIONS (9)
  - Fibroma [Recovered/Resolved]
  - Herpes zoster [Recovered/Resolved]
  - Osteopenia [Not Recovered/Not Resolved]
  - Nasopharyngitis [Unknown]
  - Rhinorrhoea [Not Recovered/Not Resolved]
  - Headache [Not Recovered/Not Resolved]
  - Toothache [Not Recovered/Not Resolved]
  - Oropharyngeal pain [Not Recovered/Not Resolved]
  - Ear pain [Not Recovered/Not Resolved]
